FAERS Safety Report 17770298 (Version 1)
Quarter: 2020Q2

REPORT INFORMATION
  Report Type: Spontaneous
  Country: IN (occurrence: IN)
  Receive Date: 20200512
  Receipt Date: 20200512
  Transmission Date: 20200714
  Serious: Yes (Death, Life-Threatening, Hospitalization, Other)
  Sender: FDA-Public Use
  Company Number: IN-STRIDES ARCOLAB LIMITED-2020SP005589

PATIENT
  Age: 57 Year
  Sex: Male

DRUGS (4)
  1. MYCOPHENOLATE MOFETIL. [Suspect]
     Active Substance: MYCOPHENOLATE MOFETIL
     Indication: RENAL TRANSPLANT
     Dosage: UNK
     Route: 065
     Dates: start: 2007
  2. TACROLIMUS. [Suspect]
     Active Substance: TACROLIMUS
     Indication: RENAL TRANSPLANT
     Dosage: UNK
     Route: 065
     Dates: start: 2007
  3. INSULIN [Concomitant]
     Active Substance: INSULIN NOS
     Indication: PRODUCT USED FOR UNKNOWN INDICATION
     Dosage: UNK
     Route: 065
  4. PREDNISOLONE. [Suspect]
     Active Substance: PREDNISOLONE
     Indication: RENAL TRANSPLANT
     Dosage: UNK
     Route: 065
     Dates: start: 2007

REACTIONS (16)
  - Infection [Fatal]
  - Pyrexia [Unknown]
  - Depressed level of consciousness [Unknown]
  - Somnolence [Unknown]
  - Septic shock [Fatal]
  - Shock [Fatal]
  - Pneumonia [Fatal]
  - Cryptococcosis [Fatal]
  - Musculoskeletal stiffness [Unknown]
  - Flavobacterium infection [Fatal]
  - Status epilepticus [Fatal]
  - Transplant dysfunction [Unknown]
  - Acute kidney injury [Fatal]
  - Acinetobacter infection [Fatal]
  - Superinfection bacterial [Fatal]
  - Meningitis [Fatal]
